FAERS Safety Report 12405389 (Version 7)
Quarter: 2016Q4

REPORT INFORMATION
  Report Type: Report from Study
  Country: ES (occurrence: ES)
  Receive Date: 20160525
  Receipt Date: 20161115
  Transmission Date: 20170207
  Serious: Yes (Death, Hospitalization)
  Sender: FDA-Public Use
  Company Number: ES-ROCHE-1762111

PATIENT
  Age: 14 Year
  Sex: Female
  Weight: 39.5 kg

DRUGS (24)
  1. ATEZOLIZUMAB [Suspect]
     Active Substance: ATEZOLIZUMAB
     Indication: NEOPLASM RECURRENCE
     Dosage: DATE OF MOST RECENT DOSE PRIOR TO THE EVENT ONSET: 13/MAY/2016
     Route: 042
     Dates: start: 20160401, end: 20160602
  2. DIAZEPAM. [Concomitant]
     Active Substance: DIAZEPAM
     Indication: PAIN
     Route: 065
     Dates: start: 20160520, end: 20160520
  3. METAMIZOLE [Concomitant]
     Active Substance: METAMIZOLE
     Indication: PAIN
     Route: 065
     Dates: start: 20160602, end: 20160604
  4. IBUPROFEN. [Concomitant]
     Active Substance: IBUPROFEN
     Indication: PAIN
     Route: 065
     Dates: start: 20160602, end: 20160604
  5. ALPRAZOLAM. [Concomitant]
     Active Substance: ALPRAZOLAM
     Indication: ANXIETY
     Route: 065
     Dates: start: 20160602, end: 20160604
  6. OMEPRAZOLE. [Concomitant]
     Active Substance: OMEPRAZOLE
     Route: 065
     Dates: start: 20160518, end: 20160904
  7. BOI K [Concomitant]
     Active Substance: POTASSIUM ASCORBATE
     Route: 065
     Dates: start: 20160520, end: 20160520
  8. POTASION [Concomitant]
     Active Substance: POTASSIUM CHLORIDE
     Indication: HYPOKALAEMIA
     Route: 065
     Dates: start: 20160521, end: 20160522
  9. MORPHINE [Concomitant]
     Active Substance: MORPHINE
     Indication: PAIN
     Route: 042
     Dates: start: 20160602
  10. SEPTRIN [Concomitant]
     Active Substance: SULFAMETHOXAZOLE\TRIMETHOPRIM
     Indication: PROPHYLAXIS
  11. PARACETAMOL [Concomitant]
     Active Substance: ACETAMINOPHEN
     Indication: PAIN
     Route: 065
     Dates: start: 20160602, end: 20160604
  12. OMEPRAZOLE. [Concomitant]
     Active Substance: OMEPRAZOLE
     Route: 065
     Dates: start: 20160518, end: 20160521
  13. ATEZOLIZUMAB [Suspect]
     Active Substance: ATEZOLIZUMAB
     Dosage: ONCE
     Route: 042
     Dates: start: 20160401
  14. OMEPRAZOLE. [Concomitant]
     Active Substance: OMEPRAZOLE
     Route: 042
     Dates: start: 20160602
  15. LACTULOSE. [Concomitant]
     Active Substance: LACTULOSE
     Indication: CONSTIPATION
     Route: 065
     Dates: start: 20160415, end: 20160428
  16. AZITHROMYCIN ANHYDROUS. [Concomitant]
     Active Substance: AZITHROMYCIN ANHYDROUS
     Route: 065
     Dates: start: 20160826, end: 20160904
  17. LARGACTIL [Concomitant]
     Active Substance: CHLORPROMAZINE
     Indication: PAIN
     Route: 065
     Dates: start: 20160602, end: 20160604
  18. POTASION [Concomitant]
     Active Substance: POTASSIUM CHLORIDE
     Route: 065
     Dates: start: 20160520, end: 20160522
  19. MST CONTINUS [Concomitant]
     Active Substance: MORPHINE SULFATE
     Indication: PAIN
     Route: 065
     Dates: start: 20160604, end: 20160610
  20. DULCOLAX (BISACODYL) [Concomitant]
     Active Substance: BISACODYL
     Indication: CONSTIPATION
     Route: 065
     Dates: start: 20160606, end: 20160606
  21. LACTULOSE. [Concomitant]
     Active Substance: LACTULOSE
     Indication: CONSTIPATION
     Route: 065
     Dates: start: 20160610, end: 20160622
  22. MORPHINE [Concomitant]
     Active Substance: MORPHINE
     Dosage: MORPHINE CLORURE
     Route: 065
     Dates: start: 20160602, end: 20160604
  23. ORAMORPH [Concomitant]
     Active Substance: MORPHINE SULFATE
     Indication: PAIN
     Route: 065
     Dates: start: 20160603, end: 20160610
  24. DIAZEPAM. [Concomitant]
     Active Substance: DIAZEPAM
     Route: 065
     Dates: start: 20160602, end: 20160604

REACTIONS (2)
  - Cardio-respiratory arrest [Fatal]
  - Superior vena cava syndrome [Not Recovered/Not Resolved]

NARRATIVE: CASE EVENT DATE: 20160518
